FAERS Safety Report 12758338 (Version 1)
Quarter: 2016Q3

REPORT INFORMATION
  Report Type: Spontaneous
  Country: US (occurrence: US)
  Receive Date: 20160916
  Receipt Date: 20160916
  Transmission Date: 20161109
  Serious: No
  Sender: FDA-Public Use
  Company Number: None

PATIENT
  Age: 29 Year
  Sex: Female
  Weight: 90 kg

DRUGS (1)
  1. HYOSCYAMINE. [Suspect]
     Active Substance: HYOSCYAMINE
     Indication: IRRITABLE BOWEL SYNDROME
     Route: 060
     Dates: start: 20160831, end: 20160916

REACTIONS (4)
  - Heart rate increased [None]
  - Panic attack [None]
  - Sleep disorder due to general medical condition, insomnia type [None]
  - Anal incontinence [None]

NARRATIVE: CASE EVENT DATE: 20160901
